FAERS Safety Report 19701762 (Version 5)
Quarter: 2021Q4

REPORT INFORMATION
  Report Type: Report from Study
  Country: US (occurrence: US)
  Receive Date: 20210813
  Receipt Date: 20211210
  Transmission Date: 20220304
  Serious: No
  Sender: FDA-Public Use
  Company Number: NVSC2021US180300

PATIENT
  Sex: Male

DRUGS (1)
  1. ENTRESTO [Suspect]
     Active Substance: SACUBITRIL\VALSARTAN
     Indication: Product used for unknown indication
     Dosage: 1 DF, BID (100 MG,97/103 MG)
     Route: 048
     Dates: start: 2018

REACTIONS (5)
  - Abdominal distension [Recovering/Resolving]
  - Weight decreased [Unknown]
  - Weight fluctuation [Not Recovered/Not Resolved]
  - Depressed mood [Unknown]
  - Product dose omission issue [Unknown]
